FAERS Safety Report 8933891 (Version 1)
Quarter: 2012Q4

REPORT INFORMATION
  Report Type: 
  Country: ES (occurrence: ES)
  Receive Date: 20121129
  Receipt Date: 20121129
  Transmission Date: 20130627
  Serious: Yes (Other)
  Sender: FDA-Public Use
  Company Number: ES-ABBOTT-12P-144-1012777-00

PATIENT
  Age: 53 Year
  Sex: Male

DRUGS (1)
  1. EPROSARTAN [Suspect]
     Indication: HYPERTENSION

REACTIONS (1)
  - Interstitial lung disease [Recovered/Resolved]
